FAERS Safety Report 24585306 (Version 1)
Quarter: 2024Q4

REPORT INFORMATION
  Report Type: Spontaneous
  Country: IN (occurrence: IN)
  Receive Date: 20241106
  Receipt Date: 20241106
  Transmission Date: 20250115
  Serious: Yes (Death, Other)
  Sender: CHIESI
  Company Number: IN-CHIESI-2024CHF06875

PATIENT
  Age: 53 Year
  Sex: Male

DRUGS (6)
  1. RETAVASE [Suspect]
     Active Substance: RETEPLASE
     Indication: Thrombosis
     Dosage: 5 UNITS
     Route: 040
  2. RETAVASE [Suspect]
     Active Substance: RETEPLASE
  3. RETAVASE [Suspect]
     Active Substance: RETEPLASE
  4. DEVICE [Suspect]
     Active Substance: DEVICE
     Indication: Thrombosis
  5. STERILE WATER [Suspect]
     Active Substance: WATER
     Indication: Thrombosis
  6. DEVICE [Suspect]
     Active Substance: DEVICE
     Indication: Thrombosis

REACTIONS (3)
  - Cerebrovascular accident [Fatal]
  - Drug ineffective [Unknown]
  - Off label use [Unknown]
